FAERS Safety Report 9614555 (Version 1)
Quarter: 2013Q4

REPORT INFORMATION
  Report Type: Spontaneous
  Country: MA (occurrence: MA)
  Receive Date: 20131011
  Receipt Date: 20131011
  Transmission Date: 20140711
  Serious: Yes (Hospitalization)
  Sender: FDA-Public Use
  Company Number: PHHY2013MA113965

PATIENT
  Sex: Male

DRUGS (1)
  1. VOLTFAST [Suspect]
     Indication: LIGAMENT SPRAIN
     Dosage: TOOK ONLY ONE DAY

REACTIONS (3)
  - Gingival bleeding [Unknown]
  - Thrombocytopenia [Unknown]
  - Platelet count decreased [Unknown]
